FAERS Safety Report 6928464-X (Version None)
Quarter: 2010Q3

REPORT INFORMATION
  Report Type: 
  Country: None (occurrence: None)
  Receive Date: 20100817
  Receipt Date: 20100808
  Transmission Date: 20110219
  Serious: Yes (Other)
  Sender: FDA-Public Use
  Company Number: US-PFIZER INC-2010100037

PATIENT
  Sex: Female

DRUGS (3)
  1. GEODON [Suspect]
     Indication: PSYCHOTIC DISORDER
     Dosage: UNK
     Dates: start: 20050101
  2. CLONAZEPAM [Concomitant]
     Dosage: 1 MG, 4X/DAY
  3. PROZAC [Concomitant]
     Dosage: 20 MG, 3X/DAY

REACTIONS (1)
  - HALLUCINATION [None]
